FAERS Safety Report 7332485-5 (Version None)
Quarter: 2011Q1

REPORT INFORMATION
  Report Type: 
  Country: None (occurrence: None)
  Receive Date: 20110304
  Receipt Date: 20110301
  Transmission Date: 20110831
  Serious: Yes (Hospitalization)
  Sender: FDA-Public Use
  Company Number: GB-ROCHE-762985

PATIENT
  Sex: Female
  Weight: 50 kg

DRUGS (8)
  1. CISPLATIN [Suspect]
     Dosage: DATE OF LAST DOSE PRIOR TO SAE: 23 FEBRUARY 2010
     Route: 042
     Dates: start: 20090720
  2. DOMPERIDONE [Concomitant]
     Route: 048
     Dates: start: 20090720
  3. BEVACIZUMAB [Suspect]
     Dosage: DATE OF LAST DOSE PRIOR TO SAE: 23 FEBRUARY 2010
     Route: 042
     Dates: start: 20090720
  4. THIAMINE [Concomitant]
     Dosage: DOSE: 1 TABLET DAILY
     Route: 048
  5. BISOPROLOL FUMARATE [Concomitant]
     Route: 048
  6. VITAMIN B [Concomitant]
     Dosage: DOSE: 2 TABLETS DAILY
     Route: 048
  7. CAPECITABINE [Suspect]
     Dosage: DATE OF LAST DOSE PRIOR TO SAE: 27 FEBRUARY 2010
     Route: 048
     Dates: start: 20090720
  8. EPIRUBICIN [Suspect]
     Dosage: DATE OF LAST DOSE PRIOR TO SAE: 23 FEBRUARY 2010
     Route: 042
     Dates: start: 20090120

REACTIONS (1)
  - INTRACARDIAC THROMBUS [None]
